FAERS Safety Report 18025172 (Version 3)
Quarter: 2021Q1

REPORT INFORMATION
  Report Type: Spontaneous
  Country: US (occurrence: US)
  Receive Date: 20200715
  Receipt Date: 20210316
  Transmission Date: 20210419
  Serious: No
  Sender: FDA-Public Use
  Company Number: US-VERTEX PHARMACEUTICALS-2020-009075

PATIENT
  Sex: Male
  Weight: 76 kg

DRUGS (15)
  1. MARIJUANA [Concomitant]
     Active Substance: CANNABIS SATIVA SUBSP. INDICA TOP
  2. TRIKAFTA [Suspect]
     Active Substance: ELEXACAFTOR\IVACAFTOR\TEZACAFTOR
     Dosage: 2 ORANGE TABLETS IN THE MORNING; 1 BLUE TAB IN EVENING
     Route: 048
     Dates: start: 2020
  3. CREON [Concomitant]
     Active Substance: PANCRELIPASE AMYLASE\PANCRELIPASE LIPASE\PANCRELIPASE PROTEASE
     Dosage: 12K?38K?60, FREQ UNK
  4. PEPCID [Concomitant]
     Active Substance: FAMOTIDINE
     Dosage: 20MG, FREQ UNK
  5. ELIQUIS [Concomitant]
     Active Substance: APIXABAN
     Dosage: 2.5MG, FREQ UNK
  6. ONDANSETRON [Concomitant]
     Active Substance: ONDANSETRON
  7. LEXAPRO [Concomitant]
     Active Substance: ESCITALOPRAM OXALATE
     Dosage: 10MG, FREQ UNK
  8. IRON [Suspect]
     Active Substance: IRON
     Indication: PRODUCT USED FOR UNKNOWN INDICATION
     Route: 065
  9. CITALOPRAM [Concomitant]
     Active Substance: CITALOPRAM HYDROBROMIDE
     Dosage: 40MG, FREQ UNK
  10. VITAMIN D [Concomitant]
     Active Substance: VITAMIN D NOS
  11. TRIKAFTA [Suspect]
     Active Substance: ELEXACAFTOR\IVACAFTOR\TEZACAFTOR
     Indication: CYSTIC FIBROSIS
     Dosage: 2 ORANGE TABS(100MG ELEXACAFTOR/50MG TEZACAFTOR/75MG IVACAFTOR)AM;1 BLUE TAB(150MG IVACAFTOR)PM
     Route: 048
     Dates: start: 202003, end: 2020
  12. OMEPRAZOLE. [Concomitant]
     Active Substance: OMEPRAZOLE
     Dosage: 10MG, FREQ UNK
  13. VITAMIN C [Concomitant]
     Active Substance: ASCORBIC ACID
  14. FOLIC ACID. [Concomitant]
     Active Substance: FOLIC ACID
  15. MAGNESIUM [Concomitant]
     Active Substance: MAGNESIUM

REACTIONS (2)
  - Vomiting [Not Recovered/Not Resolved]
  - Nausea [Not Recovered/Not Resolved]
